FAERS Safety Report 6066152-5 (Version None)
Quarter: 2009Q1

REPORT INFORMATION
  Report Type: 
  Country: None (occurrence: None)
  Receive Date: 20090130
  Receipt Date: 20090122
  Transmission Date: 20090719
  Serious: Yes (Life-Threatening)
  Sender: FDA-Public Use
  Company Number: A-CH2009-23420

PATIENT
  Age: 43 Year
  Sex: Female
  Weight: 58 kg

DRUGS (5)
  1. TRACLEER [Suspect]
     Indication: SKIN ULCER
     Dosage: 125 MG, BID, ORAL; 62.5 MG, BID, ORAL
     Route: 048
     Dates: start: 20071101, end: 20080101
  2. TRACLEER [Suspect]
     Indication: SKIN ULCER
     Dosage: 125 MG, BID, ORAL; 62.5 MG, BID, ORAL
     Route: 048
     Dates: start: 20080101
  3. ILOMEDINE(ILOPROST) [Suspect]
     Dates: start: 20000301
  4. NICARDIPINE HCL [Concomitant]
  5. INIPOMP (PANTOPRAZOLE) [Concomitant]

REACTIONS (4)
  - DYSPNOEA EXERTIONAL [None]
  - LUNG CANCER METASTATIC [None]
  - METASTASES TO SPINE [None]
  - PRODUCTIVE COUGH [None]
